FAERS Safety Report 5901018-X (Version None)
Quarter: 2008Q3

REPORT INFORMATION
  Report Type: 
  Country: None (occurrence: None)
  Receive Date: 20080929
  Receipt Date: 20080919
  Transmission Date: 20090109
  Serious: Yes (Other)
  Sender: FDA-Public Use
  Company Number: US-JNJFOC-20080904748

PATIENT

DRUGS (7)
  1. INTELENCE [Suspect]
     Indication: HIV INFECTION
     Route: 048
  2. PREZISTA [Suspect]
     Indication: HIV INFECTION
     Route: 048
  3. NORVIR [Concomitant]
     Indication: HIV INFECTION
  4. ISENTRESS [Concomitant]
     Indication: HIV INFECTION
  5. TENOFOVIR [Concomitant]
     Indication: HIV INFECTION
  6. EMTRICITABINE [Concomitant]
     Indication: HIV INFECTION
  7. FUZEON [Concomitant]
     Indication: HIV INFECTION

REACTIONS (2)
  - ANAEMIA [None]
  - HYPERTHYROIDISM [None]
